FAERS Safety Report 11361136 (Version 1)
Quarter: 2015Q3

REPORT INFORMATION
  Report Type: Spontaneous
  Country: DE (occurrence: DE)
  Receive Date: 20150810
  Receipt Date: 20150810
  Transmission Date: 20151125
  Serious: Yes (Other)
  Sender: FDA-Public Use
  Company Number: DE-PFIZER INC-2015257346

PATIENT
  Age: 30 Year
  Sex: Female

DRUGS (1)
  1. PHENYTOIN. [Suspect]
     Active Substance: PHENYTOIN
     Dosage: 0.3
     Route: 048

REACTIONS (8)
  - Jaundice [Recovering/Resolving]
  - Pyrexia [Recovering/Resolving]
  - Eosinophilia [Recovering/Resolving]
  - Rash generalised [Recovering/Resolving]
  - Liver injury [Recovering/Resolving]
  - Hepatosplenomegaly [Recovering/Resolving]
  - Lymphadenopathy [Recovering/Resolving]
  - Coma hepatic [Recovering/Resolving]
